FAERS Safety Report 8192655-3 (Version None)
Quarter: 2012Q1

REPORT INFORMATION
  Report Type: 
  Country: None (occurrence: None)
  Receive Date: 20120308
  Receipt Date: 20120227
  Transmission Date: 20120608
  Serious: Yes (Hospitalization, Other)
  Sender: FDA-Public Use
  Company Number: US-JNJFOC-20120214240

PATIENT
  Sex: Male
  Weight: 33.11 kg

DRUGS (3)
  1. CLARITIN [Concomitant]
     Indication: MULTIPLE ALLERGIES
     Route: 048
     Dates: start: 19900101
  2. KEPPRA [Suspect]
     Indication: CONVULSION
     Route: 048
     Dates: start: 20090101, end: 20110101
  3. TOPAMAX [Suspect]
     Indication: CONVULSION
     Route: 048
     Dates: end: 20120213

REACTIONS (7)
  - PNEUMONIA [None]
  - ADVERSE EVENT [None]
  - URINARY TRACT INFECTION [None]
  - JOINT DISLOCATION [None]
  - VOMITING [None]
  - CONVULSION [None]
  - ASPIRATION [None]
